FAERS Safety Report 10885252 (Version 9)
Quarter: 2017Q1

REPORT INFORMATION
  Report Type: Report from Study
  Country: CA (occurrence: CA)
  Receive Date: 20150304
  Receipt Date: 20170213
  Transmission Date: 20170428
  Serious: Yes (Other)
  Sender: FDA-Public Use
  Company Number: PHHY2014CA065210

PATIENT
  Age: 62 Year
  Sex: Female

DRUGS (2)
  1. SANDOSTATIN LAR DEPOT [Suspect]
     Active Substance: OCTREOTIDE ACETATE
     Indication: ACROMEGALY
     Dosage: 20 MG, QMO (ONCE A MONTH)
     Route: 030
     Dates: start: 20140520
  2. SANDOSTATIN LAR DEPOT [Suspect]
     Active Substance: OCTREOTIDE ACETATE
     Dosage: 30 MG, UNK
     Route: 030
     Dates: start: 20160706

REACTIONS (17)
  - Ear pain [Unknown]
  - Balance disorder [Unknown]
  - Contusion [Unknown]
  - Malaise [Unknown]
  - Diarrhoea [Unknown]
  - Injection site haemorrhage [Recovered/Resolved]
  - Facial paralysis [Recovering/Resolving]
  - Ear infection [Recovering/Resolving]
  - Weight decreased [Unknown]
  - Incorrect dose administered [Unknown]
  - Blood pressure increased [Unknown]
  - Asthenopia [Recovering/Resolving]
  - Fatigue [Unknown]
  - Drug dispensing error [Unknown]
  - Obesity [Unknown]
  - Fall [Unknown]
  - Insomnia [Unknown]

NARRATIVE: CASE EVENT DATE: 20140520
